FAERS Safety Report 12384350 (Version 1)
Quarter: 2016Q2

REPORT INFORMATION
  Report Type: Spontaneous
  Country: US (occurrence: None)
  Receive Date: 20160518
  Receipt Date: 20160518
  Transmission Date: 20160815
  Serious: Yes (Other)
  Sender: FDA-Public Use
  Company Number: None

PATIENT
  Age: 19 Year
  Sex: Female
  Weight: 59.88 kg

DRUGS (3)
  1. SPIRONOLACTONE, 25MG, 25MG [Suspect]
     Active Substance: SPIRONOLACTONE
     Indication: ACNE CYSTIC
     Route: 048
     Dates: start: 20160505, end: 20160516
  2. ENSKYCE [Concomitant]
     Active Substance: DESOGESTREL\ETHINYL ESTRADIOL
  3. CENTRUM WOMEN MULTVITAMINS [Concomitant]

REACTIONS (6)
  - Decreased appetite [None]
  - Pyrexia [None]
  - Physical product label issue [None]
  - Headache [None]
  - Fatigue [None]
  - Haematemesis [None]

NARRATIVE: CASE EVENT DATE: 20160516
